FAERS Safety Report 13999970 (Version 1)
Quarter: 2017Q3

REPORT INFORMATION
  Report Type: Spontaneous
  Country: PL (occurrence: PL)
  Receive Date: 20170922
  Receipt Date: 20170922
  Transmission Date: 20171128
  Serious: Yes (Other)
  Sender: FDA-Public Use
  Company Number: PL-TEVA-807543ISR

PATIENT
  Age: 15 Year
  Sex: Female
  Weight: 74 kg

DRUGS (2)
  1. DOXYCYCLINE. [Interacting]
     Active Substance: DOXYCYCLINE
     Indication: ACNE
     Route: 065
  2. COPAXONE [Suspect]
     Active Substance: GLATIRAMER ACETATE
     Indication: MULTIPLE SCLEROSIS
     Dosage: 20 MILLIGRAM/MILLILITERS DAILY;
     Dates: start: 20160908, end: 20170812

REACTIONS (5)
  - Anxiety [Recovered/Resolved]
  - Lip oedema [Recovered/Resolved]
  - Drug interaction [Unknown]
  - Erythema [Recovered/Resolved]
  - Agitation [Recovered/Resolved]

NARRATIVE: CASE EVENT DATE: 20170812
